FAERS Safety Report 6549289-3 (Version None)
Quarter: 2010Q1

REPORT INFORMATION
  Report Type: 
  Country: None (occurrence: None)
  Receive Date: 20100125
  Receipt Date: 20100118
  Transmission Date: 20100710
  Serious: Yes (Hospitalization, Other)
  Sender: FDA-Public Use
  Company Number: SA-ROXANE LABORATORIES, INC.-2010-RO-00045RO

PATIENT
  Age: 73 Year
  Sex: Female

DRUGS (11)
  1. METHOTREXATE [Suspect]
     Indication: RHEUMATOID ARTHRITIS
  2. CYTOSINE ARABINOSIDE [Concomitant]
     Indication: ACUTE MYELOID LEUKAEMIA
     Route: 058
  3. CYTOSINE ARABINOSIDE [Concomitant]
     Dosage: 40 MG
     Route: 058
  4. OMEPRAZOLE [Concomitant]
     Dosage: 20 MG
  5. FLUCONAZOLE [Concomitant]
     Dosage: 200 MG
  6. FOSAMAX [Concomitant]
  7. CALCIUM CALTRATE [Concomitant]
  8. VITAMIN D [Concomitant]
  9. AMLODIPINE [Concomitant]
     Dosage: 5 MG
  10. CEFUROXIME [Concomitant]
     Dosage: 1000 MG
  11. CEFTRIAXONE [Concomitant]
     Indication: BRONCHOPNEUMONIA
     Route: 042

REACTIONS (3)
  - ACUTE MYELOID LEUKAEMIA [None]
  - BRONCHOPNEUMONIA [None]
  - MYELODYSPLASTIC SYNDROME [None]
